FAERS Safety Report 9160896 (Version 2)
Quarter: 2013Q2

REPORT INFORMATION
  Report Type: Spontaneous
  Country: US (occurrence: US)
  Receive Date: 20130313
  Receipt Date: 20130402
  Transmission Date: 20140414
  Serious: Yes (Hospitalization)
  Sender: FDA-Public Use
  Company Number: US-BAXTER-2013BAX008835

PATIENT
  Age: 71 Year
  Sex: Female

DRUGS (1)
  1. DIANEAL LOW CALCIUM [Suspect]
     Indication: PERITONEAL DIALYSIS
     Route: 033

REACTIONS (5)
  - Vaginal haemorrhage [Recovered/Resolved]
  - Loss of consciousness [Recovered/Resolved]
  - Gastrointestinal infection [Unknown]
  - Dehydration [Recovered/Resolved]
  - Asthenia [Not Recovered/Not Resolved]
